FAERS Safety Report 5058753-8 (Version None)
Quarter: 2006Q3

REPORT INFORMATION
  Report Type: 
  Country: None (occurrence: None)
  Receive Date: 20060721
  Receipt Date: 20050505
  Transmission Date: 20061208
  Serious: No
  Sender: FDA-Public Use
  Company Number: US-AMGEN-US131336

PATIENT
  Sex: Female
  Weight: 80 kg

DRUGS (3)
  1. ARANESP [Suspect]
     Indication: RENAL FAILURE CHRONIC
     Route: 058
     Dates: start: 20050501
  2. EPOGEN [Suspect]
     Indication: RENAL FAILURE CHRONIC
  3. PROCRIT [Suspect]

REACTIONS (2)
  - HYPERSENSITIVITY [None]
  - MYALGIA [None]
